FAERS Safety Report 9840315 (Version 1)
Quarter: 2013Q4

REPORT INFORMATION
  Report Type: Spontaneous
  Country: US (occurrence: None)
  Receive Date: 20131211
  Receipt Date: 20131211
  Transmission Date: 20140711
  Serious: No
  Sender: FDA-Public Use
  Company Number: ALL1-2012-04397

PATIENT
  Age: 22 Year
  Sex: Female
  Weight: 65.8 kg

DRUGS (6)
  1. FIRAZYR [Suspect]
     Indication: HEREDITARY ANGIOEDEMA
     Dosage: 30 MG, AS REQ^D, SUBCUTANEOUS
     Route: 058
     Dates: start: 20120630
  2. PARAGARD (INTRAUTERINE CONTRACEPTIVE DEVICE) [Concomitant]
  3. CITALOPRAM (CITALOPRAM) [Concomitant]
  4. RANITIDINE (RANITIDINE) [Concomitant]
  5. LORTAB [Concomitant]
  6. MULTIVITAMIN [Concomitant]

REACTIONS (2)
  - Injection site erythema [None]
  - Injection site rash [None]
